FAERS Safety Report 21647141 (Version 2)
Quarter: 2022Q4

REPORT INFORMATION
  Report Type: Spontaneous
  Country: US (occurrence: US)
  Receive Date: 20221127
  Receipt Date: 20221209
  Transmission Date: 20230113
  Serious: Yes (Other)
  Sender: FDA-Public Use
  Company Number: US-ASTELLAS-2022US041749

PATIENT
  Age: 58 Year
  Sex: Female

DRUGS (5)
  1. PROGRAF [Suspect]
     Active Substance: TACROLIMUS
     Indication: Renal transplant
     Dosage: 1.5 MG, TWICE DAILY (THREE 0.5 MG CAPSULES IN MORNING AND THREE 0.5 MG CAPSULES IN NIGHT)
     Route: 048
  2. TACROLIMUS [Suspect]
     Active Substance: TACROLIMUS
     Indication: Renal transplant
     Dosage: 1.5 MG, TWICE DAILY (1.5 MG IN MORNING AND AT NIGHT)
     Route: 048
  3. TACROLIMUS [Suspect]
     Active Substance: TACROLIMUS
     Dosage: 1 MG, TWICE DAILY (1MG IN MORNING AND 1 MG IN NIGHT)
     Route: 048
     Dates: start: 2021
  4. TACROLIMUS [Suspect]
     Active Substance: TACROLIMUS
     Dosage: 1.5 MG, OTHER (TWO 0.5 MG CAPSULES IN MORNING AND ONE 0.5 MG CAPSULE AT NIGHT)
     Route: 048
     Dates: start: 202201
  5. COUMADIN [Suspect]
     Active Substance: WARFARIN SODIUM
     Indication: Product used for unknown indication
     Dosage: UNK UNK, UNKNOWN FREQ.
     Route: 065

REACTIONS (5)
  - Secondary immunodeficiency [Recovered/Resolved]
  - Upper limb fracture [Recovered/Resolved]
  - COVID-19 [Unknown]
  - Immunosuppressant drug level increased [Unknown]
  - Drug interaction [Unknown]

NARRATIVE: CASE EVENT DATE: 20211127
